FAERS Safety Report 24046342 (Version 1)
Quarter: 2024Q3

REPORT INFORMATION
  Report Type: Spontaneous
  Country: AU (occurrence: AU)
  Receive Date: 20240703
  Receipt Date: 20240703
  Transmission Date: 20241016
  Serious: Yes (Other)
  Sender: BAYER
  Company Number: AU-BAYER-2024A093944

PATIENT
  Age: 59 Year
  Sex: Male

DRUGS (6)
  1. NUBEQA [Suspect]
     Active Substance: DAROLUTAMIDE
     Indication: Hormone-dependent prostate cancer
     Dosage: UNK
  2. PRAVACHOL [Concomitant]
     Active Substance: PRAVASTATIN SODIUM
     Indication: Gout
     Dosage: UNK
  3. ALLOPURINOL [Concomitant]
     Active Substance: ALLOPURINOL
     Indication: Gout
     Dosage: UNK
  4. DEGARELIX [Concomitant]
     Active Substance: DEGARELIX
     Indication: Prostate cancer
     Dosage: UNK
  5. GOSERELIN [Concomitant]
     Active Substance: GOSERELIN
     Indication: Prostate cancer
     Dosage: UNK
  6. DOCETAXEL [Concomitant]
     Active Substance: DOCETAXEL\DOCETAXEL ANHYDROUS
     Indication: Prostate cancer
     Dosage: UNK

REACTIONS (1)
  - Road traffic accident [Unknown]
